FAERS Safety Report 26033508 (Version 1)
Quarter: 2025Q4

REPORT INFORMATION
  Report Type: Report from Study
  Country: US (occurrence: US)
  Receive Date: 20251112
  Receipt Date: 20251112
  Transmission Date: 20260118
  Serious: Yes (Hospitalization, Other)
  Sender: GILEAD
  Company Number: US-GILEAD-2025-0735123

PATIENT
  Age: 63 Year
  Sex: Female
  Weight: 86 kg

DRUGS (1)
  1. SACITUZUMAB GOVITECAN-HZIY [Suspect]
     Active Substance: SACITUZUMAB GOVITECAN-HZIY
     Indication: Triple negative breast cancer
     Dosage: UNK
     Route: 065

REACTIONS (5)
  - Diarrhoea haemorrhagic [Unknown]
  - Colitis [Unknown]
  - Abdominal pain [Unknown]
  - Bacterial test positive [Unknown]
  - Rash [Unknown]

NARRATIVE: CASE EVENT DATE: 20251005
